FAERS Safety Report 19788474 (Version 1)
Quarter: 2021Q3

REPORT INFORMATION
  Report Type: Spontaneous
  Country: US (occurrence: US)
  Receive Date: 20210903
  Receipt Date: 20210903
  Transmission Date: 20211014
  Serious: No
  Sender: FDA-Public Use
  Company Number: US-B.I. PHARMACEUTICALS,INC./RIDGEFIELD-2021-BI-125242

PATIENT
  Age: 75 Year
  Sex: Male

DRUGS (2)
  1. OFEV [Suspect]
     Active Substance: NINTEDANIB
     Indication: INTERSTITIAL LUNG DISEASE
     Dosage: 150 MG PO BID
     Route: 048
     Dates: start: 20210808
  2. CELLCEPT [Concomitant]
     Active Substance: MYCOPHENOLATE MOFETIL\MYCOPHENOLATE MOFETIL HYDROCHLORIDE
     Indication: ORGANISING PNEUMONIA
     Dosage: UNKNOWN
     Route: 065

REACTIONS (2)
  - Continuous positive airway pressure [Not Recovered/Not Resolved]
  - Sinus operation [Not Recovered/Not Resolved]

NARRATIVE: CASE EVENT DATE: 20210808
